FAERS Safety Report 6789995-9 (Version None)
Quarter: 2010Q2

REPORT INFORMATION
  Report Type: 
  Country: None (occurrence: None)
  Receive Date: 20100624
  Receipt Date: 20100616
  Transmission Date: 20101027
  Serious: Yes (Other)
  Sender: FDA-Public Use
  Company Number: JP-PFIZER INC-2010075130

PATIENT
  Age: 36 Year
  Sex: Female

DRUGS (2)
  1. AMLODIN [Suspect]
     Dosage: UNK
  2. MYSLEE [Suspect]
     Dosage: UNK

REACTIONS (3)
  - INTENTIONAL OVERDOSE [None]
  - RENAL FAILURE ACUTE [None]
  - RHABDOMYOLYSIS [None]
